FAERS Safety Report 5878577-9 (Version None)
Quarter: 2008Q3

REPORT INFORMATION
  Report Type: 
  Country: None (occurrence: None)
  Receive Date: 20080909
  Receipt Date: 20080905
  Transmission Date: 20090109
  Serious: Yes (Hospitalization)
  Sender: FDA-Public Use
  Company Number: GXKR2008DE08498

PATIENT
  Sex: Female

DRUGS (6)
  1. DIAZEPAM [Suspect]
     Indication: SCHIZOPHRENIA, PARANOID TYPE
     Dosage: ORAL
     Route: 048
     Dates: start: 20070523, end: 20070614
  2. HALDOL [Suspect]
     Indication: SCHIZOPHRENIA, PARANOID TYPE
     Dosage: ORAL
     Route: 048
     Dates: start: 20070523, end: 20070703
  3. LEPONEX ^WANDER^ (CLOZAPINE) 50MG [Suspect]
     Indication: SCHIZOPHRENIA, PARANOID TYPE
     Dosage: ORAL
     Route: 048
     Dates: start: 20070524
  4. MELEURIN (MELPERONE HYDROCHLORIDE) [Concomitant]
  5. CANDIO-HERMAL (NYSTATIN) [Concomitant]
  6. ASPIRIN [Concomitant]

REACTIONS (1)
  - HEPATITIS ACUTE [None]
